FAERS Safety Report 6695189-8 (Version None)
Quarter: 2010Q2

REPORT INFORMATION
  Report Type: 
  Country: None (occurrence: None)
  Receive Date: 20100423
  Receipt Date: 20100413
  Transmission Date: 20101027
  Serious: Yes (Hospitalization)
  Sender: FDA-Public Use
  Company Number: US-WATSON-2010-03780

PATIENT
  Sex: Female
  Weight: 45.4 kg

DRUGS (3)
  1. METOPROLOL SUCCINATE (WATSON LABORATORIES) [Suspect]
     Indication: SUPRAVENTRICULAR TACHYCARDIA
     Dosage: 1 PILL A DAY
     Route: 048
     Dates: start: 20091201, end: 20091201
  2. SYNTHROID [Concomitant]
     Indication: DRUG USE FOR UNKNOWN INDICATION
     Dosage: ^100 MG PILL A DAY^
     Route: 048
  3. ASPIRIN [Concomitant]
     Indication: DRUG USE FOR UNKNOWN INDICATION
     Dosage: 1 A DAY
     Route: 048
     Dates: start: 19990101

REACTIONS (6)
  - CONDITION AGGRAVATED [None]
  - DRUG INEFFECTIVE [None]
  - GAIT DISTURBANCE [None]
  - INSOMNIA [None]
  - SUPRAVENTRICULAR TACHYCARDIA [None]
  - WEIGHT DECREASED [None]
